FAERS Safety Report 5445475-4 (Version None)
Quarter: 2007Q3

REPORT INFORMATION
  Report Type: 
  Country: None (occurrence: None)
  Receive Date: 20070731
  Receipt Date: 20070619
  Transmission Date: 20080115
  Serious: No
  Sender: FDA-Public Use
  Company Number: US200706004314

PATIENT
  Age: 65 Year
  Sex: Male

DRUGS (2)
  1. BYETTA [Suspect]
     Dosage: SUBCUTANEOUS
     Route: 058
  2. EXENATIDE STRENGTH PEN, DISPOSABLE DEVICE (EXENATIDE PEN (UNKNOWN STRE [Concomitant]

REACTIONS (1)
  - IMPAIRED GASTRIC EMPTYING [None]
